FAERS Safety Report 9004276 (Version 1)
Quarter: 2013Q1

REPORT INFORMATION
  Report Type: Spontaneous
  Country: GB (occurrence: GB)
  Receive Date: 20130108
  Receipt Date: 20130108
  Transmission Date: 20140127
  Serious: Yes (Other)
  Sender: FDA-Public Use
  Company Number: GB-TEVA-378858ISR

PATIENT
  Age: 27 Year
  Sex: Female
  Weight: 63.5 kg

DRUGS (1)
  1. LEVOTHYROXINE [Suspect]
     Indication: THYROIDECTOMY
     Route: 048
     Dates: start: 20070129

REACTIONS (7)
  - Palpitations [Not Recovered/Not Resolved]
  - Chest pain [Not Recovered/Not Resolved]
  - Heart rate increased [Not Recovered/Not Resolved]
  - Musculoskeletal chest pain [Not Recovered/Not Resolved]
  - Back pain [Not Recovered/Not Resolved]
  - Crepitations [Unknown]
  - Chondropathy [Unknown]
